FAERS Safety Report 13782835 (Version 1)
Quarter: 2017Q3

REPORT INFORMATION
  Report Type: Spontaneous
  Country: GB (occurrence: GB)
  Receive Date: 20170724
  Receipt Date: 20170724
  Transmission Date: 20171127
  Serious: Yes (Other)
  Sender: FDA-Public Use
  Company Number: GB-PFIZER INC-323005

PATIENT
  Age: 68 Year
  Sex: Male

DRUGS (3)
  1. DIAZEPAM. [Concomitant]
     Active Substance: DIAZEPAM
     Dosage: 1 DOSE FORM
  2. METHOTREXATE SODIUM. [Suspect]
     Active Substance: METHOTREXATE SODIUM
     Indication: PSORIASIS
     Dosage: 12.5 MG
     Route: 048
     Dates: start: 20090101
  3. FENTANYL. [Concomitant]
     Active Substance: FENTANYL
     Route: 062

REACTIONS (1)
  - Claustrophobia [Recovering/Resolving]
